FAERS Safety Report 8472891-9 (Version None)
Quarter: 2012Q2

REPORT INFORMATION
  Report Type: 
  Country: None (occurrence: None)
  Receive Date: 20120627
  Receipt Date: 20120625
  Transmission Date: 20120825
  Serious: Yes (Hospitalization)
  Sender: FDA-Public Use
  Company Number: US-GILEAD-2012-0056044

PATIENT
  Sex: Female

DRUGS (1)
  1. LETAIRIS [Suspect]
     Indication: PULMONARY HYPERTENSION
     Dosage: 5 MG, UNK
     Route: 048
     Dates: start: 20120404

REACTIONS (6)
  - DIZZINESS [None]
  - THROMBOSIS [None]
  - CARDIAC ENZYMES INCREASED [None]
  - HYPOTENSION [None]
  - PULMONARY HYPERTENSION [None]
  - ASTHENIA [None]
